FAERS Safety Report 8244206-2 (Version None)
Quarter: 2012Q1

REPORT INFORMATION
  Report Type: 
  Country: None (occurrence: None)
  Receive Date: 20120329
  Receipt Date: 20120322
  Transmission Date: 20120608
  Serious: Yes (Other)
  Sender: FDA-Public Use
  Company Number: FR-MERCK-1203USA03107

PATIENT
  Age: 77 Year
  Sex: Female

DRUGS (5)
  1. RAMIPRIL [Concomitant]
     Route: 048
  2. LASIX [Concomitant]
     Route: 048
  3. FOSAMAX [Suspect]
     Route: 048
  4. HYPERIUM [Concomitant]
     Route: 048
  5. BISOPROLOL FUMARATE [Concomitant]
     Route: 048

REACTIONS (1)
  - OSTEONECROSIS [None]
